FAERS Safety Report 4876456-7 (Version None)
Quarter: 2005Q4

REPORT INFORMATION
  Report Type: 
  Country: None (occurrence: None)
  Receive Date: 20051206
  Receipt Date: 20051019
  Transmission Date: 20060501
  Serious: No
  Sender: FDA-Public Use
  Company Number: USA0510111307

PATIENT
  Age: 28 Year
  Sex: Female

DRUGS (1)
  1. CYMBALTA [Suspect]
     Indication: MAJOR DEPRESSION
     Dosage: 20 MG/BID
     Dates: start: 20050930

REACTIONS (3)
  - ADVERSE EVENT [None]
  - DEPRESSION [None]
  - FEELING ABNORMAL [None]
